FAERS Safety Report 4350636-1 (Version None)
Quarter: 2004Q2

REPORT INFORMATION
  Report Type: 
  Country: None (occurrence: None)
  Receive Date: 20040427
  Receipt Date: 20040419
  Transmission Date: 20050107
  Serious: Yes (Hospitalization)
  Sender: FDA-Public Use
  Company Number: 2004209980FR

PATIENT
  Age: 67 Year
  Sex: Female
  Weight: 62 kg

DRUGS (6)
  1. XANAX [Suspect]
     Dosage: ORAL
     Route: 048
     Dates: start: 20040117, end: 20040129
  2. KETOPROFEN [Suspect]
     Dosage: ORAL
     Route: 048
     Dates: start: 20040117, end: 20040129
  3. LIPANTHYL ^THISSEN^ [Concomitant]
  4. LEVOTHYROXINE SODIUM [Concomitant]
  5. TRIMIPRAMINE [Concomitant]
  6. ZOMIG [Concomitant]

REACTIONS (2)
  - NECROSIS [None]
  - PANCREATITIS ACUTE [None]
